FAERS Safety Report 5165202-8 (Version None)
Quarter: 2006Q4

REPORT INFORMATION
  Report Type: 
  Country: None (occurrence: None)
  Receive Date: 20061127
  Receipt Date: 20060912
  Transmission Date: 20070319
  Serious: Yes (Hospitalization)
  Sender: FDA-Public Use
  Company Number: CERZ-11400

PATIENT
  Age: 47 Year
  Sex: Male
  Weight: 96 kg

DRUGS (1)
  1. CEREZYME [Suspect]
     Indication: GAUCHER'S DISEASE
     Dosage: 6000 UNITS Q2WKS IV
     Route: 042
     Dates: start: 19961205

REACTIONS (5)
  - ABSCESS [None]
  - ALCOHOL USE [None]
  - GAMMA-GLUTAMYLTRANSFERASE INCREASED [None]
  - IMPAIRED HEALING [None]
  - OSTEOMYELITIS [None]
